FAERS Safety Report 23746999 (Version 1)
Quarter: 2024Q2

REPORT INFORMATION
  Report Type: Spontaneous
  Country: CA (occurrence: CA)
  Receive Date: 20240416
  Receipt Date: 20240416
  Transmission Date: 20240716
  Serious: Yes (Death, Life-Threatening, Hospitalization, Disabling, Other)
  Sender: FDA-Public Use
  Company Number: CA-OPELLA-2024OHG012936

PATIENT
  Age: 80 Year
  Sex: Male
  Weight: 69 kg

DRUGS (12)
  1. PREVACID [Suspect]
     Active Substance: LANSOPRAZOLE
     Indication: Intentional product misuse
     Dosage: 30 MG, QD?CAPSULE
     Route: 048
  2. PREVACID [Suspect]
     Active Substance: LANSOPRAZOLE
     Indication: Antacid therapy
     Dosage: CAPSULE
     Route: 065
  3. PREVACID [Suspect]
     Active Substance: LANSOPRAZOLE
     Indication: Off label use
     Dosage: 30 MG, QD?CAPSULE
     Route: 048
  4. PREVACID [Suspect]
     Active Substance: LANSOPRAZOLE
     Dosage: CAPSULE
     Route: 065
  5. ACETAMINOPHEN [Suspect]
     Active Substance: ACETAMINOPHEN
     Indication: Analgesic therapy
     Dosage: DOSE DESCRIPTION : 650 MG, QD
     Route: 048
  6. ACETAMINOPHEN [Suspect]
     Active Substance: ACETAMINOPHEN
     Indication: Off label use
     Dosage: DOSE DESCRIPTION : 5 MG, QD
     Route: 042
  7. ACETAMINOPHEN [Suspect]
     Active Substance: ACETAMINOPHEN
     Indication: Intentional product misuse
     Dosage: DOSE DESCRIPTION : 650 MG, QD
     Route: 048
  8. ACETAMINOPHEN [Suspect]
     Active Substance: ACETAMINOPHEN
     Indication: Product used for unknown indication
     Dosage: DOSE DESCRIPTION : 5 MG, QD
     Route: 042
  9. DULCOLAX STIMULANT LAXATIVE [Suspect]
     Active Substance: BISACODYL
     Indication: Constipation
     Dosage: : 10.0 MG, QD
     Route: 054
  10. DULCOLAX STIMULANT LAXATIVE [Suspect]
     Active Substance: BISACODYL
     Dosage: DOSE DESCRIPTION : 133 MG
     Route: 065
  11. DULCOLAX STIMULANT LAXATIVE [Suspect]
     Active Substance: BISACODYL
     Dosage: : 10.0 MG, QD
     Route: 054
  12. DULCOLAX STIMULANT LAXATIVE [Suspect]
     Active Substance: BISACODYL
     Dosage: DOSE DESCRIPTION : 133 MG
     Route: 065

REACTIONS (53)
  - Ventricular fibrillation [Fatal]
  - Anaemia [Fatal]
  - Chronic obstructive pulmonary disease [Fatal]
  - Abdominal distension [Fatal]
  - Abdominal pain [Fatal]
  - Analgesic therapy [Fatal]
  - Appendicitis [Fatal]
  - Appendicolith [Fatal]
  - Ascites [Fatal]
  - Bacterial infection [Fatal]
  - Blood cholesterol increased [Fatal]
  - Blood phosphorus increased [Fatal]
  - Blood uric acid increased [Fatal]
  - Cardiogenic shock [Fatal]
  - Condition aggravated [Fatal]
  - Constipation [Fatal]
  - Diabetes mellitus [Fatal]
  - Drug hypersensitivity [Fatal]
  - Drug intolerance [Fatal]
  - Dry mouth [Fatal]
  - Dyspnoea [Fatal]
  - General physical health deterioration [Fatal]
  - Hyperphosphataemia [Fatal]
  - Hyponatraemia [Fatal]
  - Iron deficiency [Fatal]
  - Multiple organ dysfunction syndrome [Fatal]
  - Myasthenia gravis [Fatal]
  - Nausea [Fatal]
  - Neuralgia [Fatal]
  - Off label use [Fatal]
  - Pulmonary embolism [Fatal]
  - Sepsis [Fatal]
  - Sleep disorder [Fatal]
  - Somnolence [Fatal]
  - Stress [Fatal]
  - Swelling [Fatal]
  - Thrombosis [Fatal]
  - Vomiting [Fatal]
  - Drug therapy [Fatal]
  - Intentional product misuse [Fatal]
  - Sleep disorder therapy [Fatal]
  - Aortic stenosis [Fatal]
  - End stage renal disease [Fatal]
  - Gout [Fatal]
  - Hyperlipidaemia [Fatal]
  - Activated partial thromboplastin time prolonged [Fatal]
  - Ulcer [Fatal]
  - Ventricular fibrillation [Fatal]
  - Anaemia [Fatal]
  - Chronic obstructive pulmonary disease [Fatal]
  - Incorrect route of product administration [Fatal]
  - Product use in unapproved indication [Fatal]
  - Drug ineffective [Unknown]

NARRATIVE: CASE EVENT DATE: 20200601
